FAERS Safety Report 7074431-8 (Version None)
Quarter: 2010Q4

REPORT INFORMATION
  Report Type: 
  Country: None (occurrence: None)
  Receive Date: 20101029
  Receipt Date: 20101029
  Transmission Date: 20110411
  Serious: Yes (Hospitalization)
  Sender: FDA-Public Use
  Company Number: US-ROXANE LABORATORIES, INC.-2010-RO-01177RO

PATIENT
  Sex: Male
  Weight: 91 kg

DRUGS (17)
  1. PREDNISONE [Suspect]
     Indication: PROSTATE CANCER METASTATIC
     Dosage: 10 MG
     Route: 048
     Dates: start: 20090811
  2. ONDANSETRON [Suspect]
  3. LIDOCAINE HYDROCHLORIDE IN PLASTIC CONTAINER [Suspect]
     Route: 061
  4. RAMUCIRUMAB(1121B) [Suspect]
     Indication: PROSTATE CANCER METASTATIC
     Route: 042
     Dates: start: 20090811
  5. MITOXANTRONE [Suspect]
     Indication: PROSTATE CANCER METASTATIC
     Route: 042
     Dates: start: 20090811
  6. CYANOCOBALAMIN [Concomitant]
  7. IBUPROFEN [Concomitant]
  8. ELIGARD [Concomitant]
  9. LISINOPRIL [Concomitant]
  10. ASACOL [Concomitant]
  11. CENTRUM SILVER [Concomitant]
  12. NIACIN [Concomitant]
  13. OXYCODONE [Concomitant]
  14. MIRALAX [Concomitant]
  15. PROCHLORPERAZINE [Concomitant]
  16. TRIAMTERENE AND HYDROCHLOROTHIAZIDE [Concomitant]
  17. POLYETHYLENE GLYCOL 3350 [Concomitant]

REACTIONS (1)
  - SMALL INTESTINAL OBSTRUCTION [None]
